FAERS Safety Report 24910691 (Version 1)
Quarter: 2025Q1

REPORT INFORMATION
  Report Type: Spontaneous
  Country: US (occurrence: US)
  Receive Date: 20250131
  Receipt Date: 20250131
  Transmission Date: 20250409
  Serious: Yes (Other)
  Sender: PFIZER
  Company Number: US-PFIZER INC-202500021429

PATIENT
  Age: 71 Year
  Sex: Female

DRUGS (19)
  1. XELJANZ XR [Suspect]
     Active Substance: TOFACITINIB CITRATE
     Indication: Rheumatoid arthritis
     Dates: end: 2023
  2. RINVOQ [Suspect]
     Active Substance: UPADACITINIB
     Indication: Rheumatoid arthritis
  3. LEVOTHYROXINE [Concomitant]
     Active Substance: LEVOTHYROXINE
     Indication: Thyroidectomy
     Dosage: 112 UG, 1X/DAY
     Dates: start: 2011
  4. ESCITALOPRAM [Concomitant]
     Active Substance: ESCITALOPRAM OXALATE
     Indication: Menopause
  5. LOSARTAN [Concomitant]
     Active Substance: LOSARTAN
     Indication: Hypertension
  6. PROTONIX [Concomitant]
     Active Substance: PANTOPRAZOLE SODIUM
     Indication: Gastrooesophageal reflux disease
  7. TRAZODONE [Concomitant]
     Active Substance: TRAZODONE HYDROCHLORIDE
     Dosage: AT BEDTIME
  8. NEBIVOLOL [Concomitant]
     Active Substance: NEBIVOLOL
  9. TOLTERODINE TARTRATE [Concomitant]
     Active Substance: TOLTERODINE TARTRATE
     Indication: Micturition urgency
  10. TRULANCE [Concomitant]
     Active Substance: PLECANATIDE
     Indication: Irritable bowel syndrome
  11. TRULANCE [Concomitant]
     Active Substance: PLECANATIDE
     Indication: Constipation
  12. METHOTREXATE [Concomitant]
     Active Substance: METHOTREXATE
     Dosage: 6 AT 1 TIME
  13. FOLIC ACID [Concomitant]
     Active Substance: FOLIC ACID
  14. CALCIUM [Concomitant]
     Active Substance: CALCIUM
  15. POTASSIUM [Concomitant]
     Active Substance: POTASSIUM
  16. VENTOLIN [Concomitant]
     Active Substance: ALBUTEROL SULFATE
  17. BREO ELLIPTA [Concomitant]
     Active Substance: FLUTICASONE FUROATE\VILANTEROL TRIFENATATE
     Indication: Routine health maintenance
  18. VITAMIN D3 [Concomitant]
     Active Substance: CHOLECALCIFEROL
  19. B 12 [Concomitant]

REACTIONS (2)
  - Back pain [Recovered/Resolved]
  - Drug ineffective [Unknown]
